FAERS Safety Report 4760899-6 (Version None)
Quarter: 2005Q3

REPORT INFORMATION
  Report Type: 
  Country: None (occurrence: None)
  Receive Date: 20050901
  Receipt Date: 20050823
  Transmission Date: 20060218
  Serious: Yes (Disabling)
  Sender: FDA-Public Use
  Company Number: HQWYE268105NOV04

PATIENT
  Age: 58 Year
  Sex: Male

DRUGS (4)
  1. DIMETAPP [Suspect]
     Indication: HYPERSENSITIVITY
  2. DIMETAPP [Suspect]
     Indication: NASOPHARYNGITIS
  3. ALKA-SELTZER PLUS (ACETYLSALICYLIC ACID/CHLORPHENAMINE MALEATE/PHENYLP [Suspect]
     Indication: HYPERSENSITIVITY
  4. ALKA-SELTZER PLUS (ACETYLSALICYLIC ACID/CHLORPHENAMINE MALEATE/PHENYLP [Suspect]
     Indication: NASOPHARYNGITIS

REACTIONS (1)
  - ISCHAEMIC STROKE [None]
